FAERS Safety Report 9677662 (Version 1)
Quarter: 2013Q4

REPORT INFORMATION
  Report Type: Report from Study
  Country: CN (occurrence: CN)
  Receive Date: 20131108
  Receipt Date: 20131108
  Transmission Date: 20140711
  Serious: Yes (Death, Other)
  Sender: FDA-Public Use
  Company Number: CN-ASTELLAS-2013US011573

PATIENT
  Age: 76 Year
  Sex: Male

DRUGS (1)
  1. ERLOTINIB TABLET [Suspect]
     Indication: NON-SMALL CELL LUNG CANCER
     Dosage: 150 MG, UID/QD
     Route: 048
     Dates: start: 20120629

REACTIONS (4)
  - Respiratory failure [Fatal]
  - Ileus [Fatal]
  - Upper limb fracture [Unknown]
  - Nasopharyngitis [Unknown]
